FAERS Safety Report 17044408 (Version 1)
Quarter: 2019Q4

REPORT INFORMATION
  Report Type: Spontaneous
  Country: GU (occurrence: GU)
  Receive Date: 20191117
  Receipt Date: 20191117
  Transmission Date: 20200122
  Serious: No
  Sender: FDA-Public Use
  Company Number: None

PATIENT
  Age: 7 Year
  Sex: Male
  Weight: 20.25 kg

DRUGS (2)
  1. MONTELUKAST SODIUM CHEWABLE TABLET [Suspect]
     Active Substance: MONTELUKAST SODIUM
     Indication: SEASONAL ALLERGY
     Dosage: ?          QUANTITY:1 TABLET(S);?
     Route: 048
     Dates: start: 20191105, end: 20191117
  2. FLUTICASONE NASAL SPRAY [Concomitant]
     Active Substance: FLUTICASONE

REACTIONS (8)
  - Myalgia [None]
  - Headache [None]
  - Self esteem decreased [None]
  - Depression [None]
  - Sleep disorder [None]
  - Somnambulism [None]
  - Product use complaint [None]
  - Dyskinesia [None]

NARRATIVE: CASE EVENT DATE: 20191116
